FAERS Safety Report 21940332 (Version 1)
Quarter: 2023Q1

REPORT INFORMATION
  Report Type: Report from Study
  Country: US (occurrence: US)
  Receive Date: 20230201
  Receipt Date: 20230201
  Transmission Date: 20230417
  Serious: No
  Sender: FDA-Public Use
  Company Number: US-EXELIXIS-CABO-22050709

PATIENT
  Sex: Male

DRUGS (19)
  1. CABOMETYX [Suspect]
     Active Substance: CABOZANTINIB S-MALATE
     Indication: Bone cancer
     Dosage: 60 MG, QD
     Dates: start: 20220203, end: 20220403
  2. CABOMETYX [Suspect]
     Active Substance: CABOZANTINIB S-MALATE
     Indication: Chondrosarcoma
     Dosage: 60 MG
  3. BENZONATATE [Concomitant]
     Active Substance: BENZONATATE
  4. ALBUTEROL SULFATE [Concomitant]
     Active Substance: ALBUTEROL SULFATE
  5. ONDANSETRON [Concomitant]
     Active Substance: ONDANSETRON
  6. HERBALS\TURMERIC [Concomitant]
     Active Substance: HERBALS\TURMERIC
  7. GARLIC [Concomitant]
     Active Substance: GARLIC
  8. GINGER [Concomitant]
     Active Substance: GINGER
  9. NINJAXIA SUPPLEMENT [Concomitant]
  10. VEGAN DHA [Concomitant]
  11. MUSHROOM BLEND [Concomitant]
  12. MELATONIN [Concomitant]
     Active Substance: MELATONIN
  13. MATCHA [Concomitant]
  14. Wheatgrass [Concomitant]
  15. ORTHOMUNE [Concomitant]
  16. THYME [Concomitant]
     Active Substance: THYME
  17. ROSEMARY OIL [Concomitant]
     Active Substance: ROSEMARY OIL
  18. OREGANO LEAF OIL [Concomitant]
     Active Substance: OREGANO LEAF OIL
  19. VITAMIN C [Concomitant]
     Active Substance: ASCORBIC ACID

REACTIONS (8)
  - Bronchitis [Unknown]
  - Skin ulcer [Unknown]
  - Hair colour changes [Unknown]
  - Impaired healing [Unknown]
  - Haemoptysis [Recovering/Resolving]
  - Fatigue [Not Recovered/Not Resolved]
  - Bronchial neoplasm [Unknown]
  - Off label use [Unknown]
